FAERS Safety Report 24964053 (Version 1)
Quarter: 2025Q1

REPORT INFORMATION
  Report Type: Spontaneous
  Country: US (occurrence: US)
  Receive Date: 20250213
  Receipt Date: 20250213
  Transmission Date: 20250409
  Serious: No
  Sender: ALEXION PHARMACEUTICALS
  Company Number: US-AstraZeneca-CH-00805127A

PATIENT

DRUGS (1)
  1. LYNPARZA [Suspect]
     Active Substance: OLAPARIB
     Indication: Ovarian cancer
     Route: 065

REACTIONS (6)
  - Erythromelalgia [Unknown]
  - Pain [Unknown]
  - Asthenia [Unknown]
  - Vasodilatation [Unknown]
  - Tenderness [Unknown]
  - Adverse drug reaction [Not Recovered/Not Resolved]
